FAERS Safety Report 7709552-7 (Version None)
Quarter: 2011Q3

REPORT INFORMATION
  Report Type: 
  Country: None (occurrence: None)
  Receive Date: 20110825
  Receipt Date: 20110822
  Transmission Date: 20111222
  Serious: Yes (Other)
  Sender: FDA-Public Use
  Company Number: GB-AMGEN-GBRCT2011016060

PATIENT
  Age: 83 Year
  Sex: Male

DRUGS (6)
  1. OMEPRAZOLE [Concomitant]
     Dosage: 20 MG, QD
     Route: 048
     Dates: start: 20100623
  2. BENDROFLUMETH [Concomitant]
     Dosage: 5 MG, QD
     Route: 048
     Dates: start: 20100930
  3. SIMAVASTATIN [Concomitant]
     Dosage: 10 MG, QD
     Route: 048
     Dates: start: 20100623
  4. BLINDED DARBEPOETIN ALFA [Suspect]
     Indication: RENAL FAILURE CHRONIC
     Dosage: UNK
     Route: 058
     Dates: start: 20101007
  5. RAMIPRIL [Concomitant]
     Dosage: 10 MG, QD
     Route: 048
     Dates: start: 20080407
  6. BETAHISTINE [Concomitant]
     Dosage: 8 MG, PRN
     Route: 048

REACTIONS (1)
  - VISUAL IMPAIRMENT [None]
